FAERS Safety Report 21787186 (Version 1)
Quarter: 2022Q4

REPORT INFORMATION
  Report Type: Spontaneous
  Country: DE (occurrence: None)
  Receive Date: 20221228
  Receipt Date: 20221228
  Transmission Date: 20230113
  Serious: Yes (Life-Threatening, Hospitalization)
  Sender: FDA-Public Use
  Company Number: None

PATIENT
  Age: 28 Year
  Sex: Female
  Weight: 95 kg

DRUGS (10)
  1. MEROPENEM [Suspect]
     Active Substance: MEROPENEM
     Indication: Staphylococcal bacteraemia
     Dosage: FOLLOWED BY THREE TIMES AS A SHORT INFUSION
  2. CASPOFUNGIN [Suspect]
     Active Substance: CASPOFUNGIN
     Indication: Candida infection
  3. HEPARIN [Concomitant]
     Active Substance: HEPARIN SODIUM
     Indication: Anticoagulant therapy
  4. FLUCONAZOLE [Suspect]
     Active Substance: FLUCONAZOLE
     Indication: Candida infection
  5. NOREPINEPHRINE [Suspect]
     Active Substance: NOREPINEPHRINE
     Indication: Vasopressive therapy
     Dosage: 0.25 UG/KG
  6. FLUCLOXACILLIN [Suspect]
     Active Substance: FLUCLOXACILLIN
     Indication: Staphylococcal bacteraemia
  7. PIPERACILLIN SODIUM\TAZOBACTAM SODIUM [Suspect]
     Active Substance: PIPERACILLIN SODIUM\TAZOBACTAM SODIUM
     Indication: Staphylococcal bacteraemia
  8. MEROPENEM [Suspect]
     Active Substance: MEROPENEM
     Indication: Staphylococcal bacteraemia
     Dosage: LOADING DOSE: 2 G
  9. INSULIN NOS [Concomitant]
     Active Substance: INSULIN NOS
     Indication: Type 1 diabetes mellitus
  10. VASOPRESSIN [Suspect]
     Active Substance: VASOPRESSIN
     Indication: Vasopressive therapy

REACTIONS (1)
  - Drug ineffective [Unknown]
